FAERS Safety Report 9262915 (Version 3)
Quarter: 2014Q2

REPORT INFORMATION
  Report Type: Spontaneous
  Country: US (occurrence: US)
  Receive Date: 20130430
  Receipt Date: 20140501
  Transmission Date: 20141212
  Serious: Yes (Other)
  Sender: FDA-Public Use
  Company Number: US-BAYER-2013-051443

PATIENT
  Age: 33 Year
  Sex: Female
  Weight: 80.73 kg

DRUGS (2)
  1. YAZ [Suspect]
     Indication: PREMENSTRUAL DYSPHORIC DISORDER
     Dosage: UNK
     Dates: start: 200507, end: 2008
  2. YASMIN [Suspect]
     Indication: PREMENSTRUAL DYSPHORIC DISORDER
     Dosage: UNK
     Dates: start: 200507, end: 2008

REACTIONS (14)
  - Deep vein thrombosis [None]
  - Injury [None]
  - Pain [None]
  - Emotional distress [None]
  - Anxiety [None]
  - Psychological trauma [None]
  - Menstrual disorder [None]
  - Nerve injury [None]
  - Dyspnoea [None]
  - Depression [None]
  - Mental disorder [None]
  - Pregnancy [None]
  - Drug ineffective [None]
  - Malaise [None]
